FAERS Safety Report 12300207 (Version 1)
Quarter: 2016Q2

REPORT INFORMATION
  Report Type: Spontaneous
  Country: US (occurrence: US)
  Receive Date: 20160425
  Receipt Date: 20160425
  Transmission Date: 20160815
  Serious: Yes (Hospitalization)
  Sender: FDA-Public Use
  Company Number: PHEH2016US009492

PATIENT
  Age: 94 Year
  Sex: Female
  Weight: 43.91 kg

DRUGS (1)
  1. EXELON PATCH [Suspect]
     Active Substance: RIVASTIGMINE
     Indication: PRODUCT USED FOR UNKNOWN INDICATION
     Dosage: 4.6 MG, UNK
     Route: 062

REACTIONS (6)
  - Delusion [Unknown]
  - Hallucination [Unknown]
  - Urinary tract infection [Unknown]
  - Weight decreased [Unknown]
  - Decreased appetite [Unknown]
  - Tremor [Unknown]
